FAERS Safety Report 9575167 (Version 1)
Quarter: 2013Q4

REPORT INFORMATION
  Report Type: Spontaneous
  Country: US (occurrence: US)
  Receive Date: 20131001
  Receipt Date: 20131001
  Transmission Date: 20140711
  Serious: Yes (Life-Threatening, Other)
  Sender: FDA-Public Use
  Company Number: US-PFIZER INC-2013280272

PATIENT
  Sex: Female

DRUGS (1)
  1. XELJANZ [Suspect]
     Dosage: UNK

REACTIONS (5)
  - Epilepsy [Unknown]
  - Convulsion [Unknown]
  - Head discomfort [Unknown]
  - Enuresis [Unknown]
  - Vomiting [Unknown]
